FAERS Safety Report 5404257-X (Version None)
Quarter: 2007Q3

REPORT INFORMATION
  Report Type: 
  Country: None (occurrence: None)
  Receive Date: 20070731
  Receipt Date: 20070718
  Transmission Date: 20080115
  Serious: Yes (Hospitalization)
  Sender: FDA-Public Use
  Company Number: 2006US002968

PATIENT
  Age: 50 Year
  Sex: Male
  Weight: 102 kg

DRUGS (2)
  1. AMEVIVE [Suspect]
     Indication: PSORIASIS
     Dosage: 15 MG, WEEKLY, INTRAMUSCULAR
     Route: 030
     Dates: start: 20060106
  2. ENBREL [Concomitant]

REACTIONS (7)
  - APPENDICITIS [None]
  - APPENDICITIS PERFORATED [None]
  - DIVERTICULUM [None]
  - ELECTROCARDIOGRAM ST SEGMENT ABNORMAL [None]
  - INFLAMMATION [None]
  - INFLUENZA LIKE ILLNESS [None]
  - RIGHT ATRIAL DILATATION [None]
